FAERS Safety Report 4379591-5 (Version None)
Quarter: 2004Q2

REPORT INFORMATION
  Report Type: 
  Country: None (occurrence: None)
  Receive Date: 20040427
  Receipt Date: 20040302
  Transmission Date: 20050107
  Serious: Yes (Other)
  Sender: FDA-Public Use
  Company Number: 360653

PATIENT
  Sex: 0

DRUGS (1)
  1. VALCYTE [Suspect]
     Dosage: TOPICAL
     Route: 061

REACTIONS (3)
  - ACCIDENTAL EXPOSURE [None]
  - DRUG EXPOSURE DURING PREGNANCY [None]
  - NO ADVERSE EFFECT [None]
